FAERS Safety Report 24402887 (Version 3)
Quarter: 2025Q1

REPORT INFORMATION
  Report Type: Report from Study
  Country: US (occurrence: US)
  Receive Date: 20241007
  Receipt Date: 20250114
  Transmission Date: 20250408
  Serious: Yes (Hospitalization, Other)
  Sender: AMGEN
  Company Number: US-AMGEN-USASP2024194532

PATIENT
  Age: 76 Year
  Sex: Female

DRUGS (3)
  1. NPLATE [Suspect]
     Active Substance: ROMIPLOSTIM
     Indication: Thrombocytopenia
     Route: 058
     Dates: start: 20240618, end: 20240718
  2. NPLATE [Suspect]
     Active Substance: ROMIPLOSTIM
     Indication: Platelet count decreased
     Route: 058
     Dates: start: 20240624
  3. NPLATE [Suspect]
     Active Substance: ROMIPLOSTIM
     Route: 058
     Dates: start: 20240722

REACTIONS (8)
  - Dyspnoea [Unknown]
  - Hypoxia [Unknown]
  - Hip arthroplasty [Unknown]
  - Body temperature increased [Recovered/Resolved]
  - Serum ferritin decreased [Not Recovered/Not Resolved]
  - Blood iron decreased [Not Recovered/Not Resolved]
  - Haemoglobin decreased [Unknown]
  - Off label use [Unknown]

NARRATIVE: CASE EVENT DATE: 20240101
